FAERS Safety Report 12540199 (Version 4)
Quarter: 2016Q3

REPORT INFORMATION
  Report Type: Spontaneous
  Country: BR (occurrence: BR)
  Receive Date: 20160708
  Receipt Date: 20160929
  Transmission Date: 20161109
  Serious: Yes (Other)
  Sender: FDA-Public Use
  Company Number: BR-PFIZER INC-2016330437

PATIENT
  Sex: Female

DRUGS (5)
  1. FRONTAL XR [Suspect]
     Active Substance: ALPRAZOLAM
     Dosage: 1 MG, UNK
     Route: 048
  2. FRONTAL XR [Suspect]
     Active Substance: ALPRAZOLAM
     Dosage: 0.5 MG, UNK
     Route: 048
  3. FRONTAL [Suspect]
     Active Substance: ALPRAZOLAM
     Dosage: UNK
  4. FRONTAL XR [Suspect]
     Active Substance: ALPRAZOLAM
     Dosage: 1 MG, UNK
     Route: 048
  5. FRONTAL XR [Suspect]
     Active Substance: ALPRAZOLAM
     Dosage: UNK
     Route: 048

REACTIONS (7)
  - Drug dependence [Unknown]
  - Abdominal distension [Not Recovered/Not Resolved]
  - Malaise [Unknown]
  - Seizure [Unknown]
  - Hepatic steatosis [Not Recovered/Not Resolved]
  - Cold sweat [Unknown]
  - Syncope [Unknown]

NARRATIVE: CASE EVENT DATE: 2015
